FAERS Safety Report 8200775-X (Version None)
Quarter: 2012Q1

REPORT INFORMATION
  Report Type: 
  Country: None (occurrence: None)
  Receive Date: 20120301
  Receipt Date: 20120221
  Transmission Date: 20120608
  Serious: Yes (Other)
  Sender: FDA-Public Use
  Company Number: 2012031374

PATIENT
  Age: 29 Year
  Sex: Female

DRUGS (1)
  1. BERINERT [Suspect]
     Indication: TONSILLECTOMY

REACTIONS (3)
  - TONSILLITIS [None]
  - SWOLLEN TONGUE [None]
  - DRUG INEFFECTIVE FOR UNAPPROVED INDICATION [None]
